FAERS Safety Report 4825112-X (Version None)
Quarter: 2005Q4

REPORT INFORMATION
  Report Type: 
  Country: None (occurrence: None)
  Receive Date: 20051109
  Receipt Date: 20051109
  Transmission Date: 20060501
  Serious: Yes (Hospitalization)
  Sender: FDA-Public Use
  Company Number: None

PATIENT
  Age: 56 Year
  Sex: Male
  Weight: 97.5234 kg

DRUGS (1)
  1. RISPERIDONE [Suspect]
     Indication: DEPRESSION
     Dosage: 0.5 MG   BID   PO
     Route: 048
     Dates: start: 20050930, end: 20051103

REACTIONS (3)
  - BLOOD KETONE BODY PRESENT [None]
  - DIABETIC KETOACIDOSIS [None]
  - HYPERGLYCAEMIA [None]
